FAERS Safety Report 8542506-X (Version None)
Quarter: 2012Q3

REPORT INFORMATION
  Report Type: 
  Country: None (occurrence: None)
  Receive Date: 20120726
  Receipt Date: 20111108
  Transmission Date: 20120928
  Serious: Yes (Hospitalization, Other)
  Sender: FDA-Public Use
  Company Number: US-ASTRAZENECA-2011SE45170

PATIENT
  Age: 58 Year
  Sex: Male

DRUGS (67)
  1. NALOXONE [Concomitant]
     Route: 042
     Dates: start: 20110424
  2. LEVAQUIN [Concomitant]
     Dosage: 150 ML=750 MG OF 5 MG/ML, EVERY 48 HOURS
     Route: 042
     Dates: start: 20110427
  3. CARBATROL CR [Concomitant]
     Route: 048
     Dates: start: 20110425
  4. CARBATROL CR [Concomitant]
     Route: 048
     Dates: start: 20110426
  5. DEXLANSOPRAZOLE [Concomitant]
     Dosage: 60 DAILY
     Route: 048
     Dates: start: 20110425
  6. NEURONTIN [Concomitant]
     Route: 048
     Dates: start: 20110425
  7. MICROZIDE [Concomitant]
     Route: 048
     Dates: start: 20110427
  8. INDERAL [Concomitant]
     Route: 048
     Dates: start: 20110426
  9. ZANAFLEX [Concomitant]
     Route: 048
     Dates: start: 20110425
  10. ZOFRAN [Concomitant]
     Route: 042
     Dates: start: 20110424
  11. BUSPAR [Concomitant]
     Route: 048
     Dates: start: 20110426
  12. DEXLANSOPRAZOLE [Concomitant]
     Dosage: 60 DAILY
     Route: 048
     Dates: start: 20110426
  13. NEURONTIN [Concomitant]
     Route: 048
     Dates: start: 20110425
  14. NEURONTIN [Concomitant]
     Route: 048
     Dates: start: 20110426
  15. INDERAL [Concomitant]
     Route: 048
     Dates: start: 20110426
  16. ZANAFLEX [Concomitant]
     Route: 048
     Dates: start: 20110425
  17. BENEFIBER [Concomitant]
     Route: 048
     Dates: start: 20110425
  18. KAYEXALATE [Concomitant]
     Dosage: 15 G/60 ML ONCE
     Route: 048
     Dates: start: 20110426
  19. SEROQUEL [Suspect]
     Indication: NERVOUSNESS
     Route: 048
  20. BUSPAR [Concomitant]
     Route: 048
     Dates: start: 20110426
  21. MICROZIDE [Concomitant]
     Route: 048
     Dates: start: 20110425
  22. INDERAL [Concomitant]
     Route: 048
     Dates: start: 20110425
  23. ZANAFLEX [Concomitant]
     Route: 048
     Dates: start: 20110425
  24. GLYCOLAX, MIRALAX [Concomitant]
     Route: 048
     Dates: start: 20110427
  25. MORPHINE SULFATE [Concomitant]
     Route: 042
     Dates: start: 20110424
  26. AZITHROMYCIN (ZITHROMAX) IN SODIUM CHLORIDE [Concomitant]
     Dosage: AZITHROMYCIN 500 MG IN SODIUM CHLORIDE 09 % 250 ML IVPB, ONCE
     Route: 042
     Dates: start: 20110425
  27. BUSPAR [Concomitant]
     Route: 048
     Dates: start: 20110425
  28. CARBATROL CR [Concomitant]
     Route: 048
     Dates: start: 20110426
  29. NEURONTIN [Concomitant]
     Route: 048
     Dates: start: 20110427
  30. INDERAL [Concomitant]
     Route: 048
     Dates: start: 20110425
  31. PAXIL [Concomitant]
     Route: 048
     Dates: start: 20110426
  32. PAXIL [Concomitant]
     Route: 048
     Dates: start: 20110427
  33. ZANAFLEX [Concomitant]
     Route: 048
     Dates: start: 20110426
  34. ZANAFLEX [Concomitant]
     Route: 048
     Dates: start: 20110426
  35. MAGNESIUM HYDROXIDE TAB [Concomitant]
     Dosage: 400 MG/5 ML 30 ML DAILY PRN
     Route: 048
  36. GLYCOLAX, MIRALAX [Concomitant]
     Route: 048
     Dates: start: 20110425
  37. ZOFRAN [Concomitant]
     Dosage: 4 MG EVERY 12 HOURS PRN
     Route: 042
  38. VANCOMYCIN IN DEXTROSE PREMIX [Concomitant]
     Route: 042
     Dates: start: 20110425
  39. MICROZIDE [Concomitant]
     Route: 048
     Dates: start: 20110426
  40. ZANAFLEX [Concomitant]
     Route: 048
     Dates: start: 20110426
  41. ACETAMINOPHEN [Concomitant]
     Route: 048
     Dates: start: 20110424
  42. LEVAQUIN [Concomitant]
     Dosage: 100 ML/HOUR, 750 MG ONCE
     Route: 042
     Dates: start: 20110425
  43. LEVAQUIN [Concomitant]
     Dosage: 150 ML=750 MG OF 5 MG/ML, EVERY 48 HOURS
     Route: 042
     Dates: start: 20110427
  44. CARBATROL CR [Concomitant]
     Route: 048
     Dates: start: 20110425
  45. NEURONTIN [Concomitant]
     Route: 048
     Dates: start: 20110426
  46. INDERAL [Concomitant]
     Route: 048
     Dates: start: 20110425
  47. PAXIL [Concomitant]
     Route: 048
     Dates: start: 20110425
  48. ZANAFLEX [Concomitant]
     Route: 048
     Dates: start: 20110427
  49. TORADOL [Concomitant]
     Dosage: 0.5 ML (15 MG OF 30 MG/ML) EVERY 6 HOURS PRN
     Route: 042
     Dates: start: 20110425
  50. BENEFIBER [Concomitant]
     Route: 048
     Dates: start: 20110426
  51. MORPHINE SULFATE [Concomitant]
     Route: 042
     Dates: start: 20110424
  52. IOPAMIDOL [Concomitant]
     Dosage: 30 ML, 61 %, DRINK 750 ML NOW AND DRINK THE OTHER 250 ML IN THE CT SCAN ROOM.
     Dates: start: 20110424
  53. ASPIRIN [Concomitant]
     Route: 048
     Dates: start: 20110425
  54. ASPIRIN [Concomitant]
     Route: 048
     Dates: start: 20110427
  55. BUSPAR [Concomitant]
     Route: 048
     Dates: start: 20110425
  56. BUSPAR [Concomitant]
     Route: 048
     Dates: start: 20110425
  57. BUSPAR [Concomitant]
     Route: 048
     Dates: start: 20110426
  58. CARBATROL CR [Concomitant]
     Route: 048
     Dates: start: 20110427
  59. COZAAR [Concomitant]
     Route: 048
     Dates: start: 20110425
  60. GLYCOLAX, MIRALAX [Concomitant]
     Route: 048
     Dates: start: 20110426
  61. LEVAQUIN [Concomitant]
     Dosage: 100 ML=500 MG OF 5 MG/ML EVERY 24 HOURS, 100 ML/HR
     Route: 042
     Dates: start: 20110425
  62. ASPIRIN [Concomitant]
     Route: 048
     Dates: start: 20110426
  63. BUSPAR [Concomitant]
     Route: 048
     Dates: start: 20110427
  64. INDERAL [Concomitant]
     Route: 048
     Dates: start: 20110426
  65. INDERAL [Concomitant]
     Route: 048
     Dates: start: 20110427
  66. TORADOL [Concomitant]
     Route: 042
     Dates: start: 20110426
  67. BENEFIBER [Concomitant]
     Route: 048
     Dates: start: 20110427

REACTIONS (8)
  - DEHYDRATION [None]
  - RENAL FAILURE ACUTE [None]
  - BLOOD CHLORIDE DECREASED [None]
  - BACK DISORDER [None]
  - BLOOD SODIUM DECREASED [None]
  - MENTAL STATUS CHANGES [None]
  - HYPERTENSION [None]
  - HYPERLIPIDAEMIA [None]
